FAERS Safety Report 19407062 (Version 1)
Quarter: 2021Q2

REPORT INFORMATION
  Report Type: Spontaneous
  Country: US (occurrence: US)
  Receive Date: 20210611
  Receipt Date: 20210611
  Transmission Date: 20210717
  Serious: No
  Sender: FDA-Public Use
  Company Number: US-GALDERMA-US2020044671

PATIENT
  Sex: Female

DRUGS (3)
  1. METRONIDAZOLE CREAM (METRONIDAZOLE) 0.75% [Suspect]
     Active Substance: METRONIDAZOLE
     Indication: RASH
  2. METRONIDAZOLE CREAM (METRONIDAZOLE) 0.75% [Suspect]
     Active Substance: METRONIDAZOLE
     Indication: ACNE
     Dosage: 0.75%
     Route: 061
     Dates: start: 20200929, end: 20200930
  3. MAKE UP THAT HAD SALICYLIC ACID IN IT [Concomitant]
     Indication: PRODUCT USED FOR UNKNOWN INDICATION
     Route: 061

REACTIONS (5)
  - Nausea [Recovered/Resolved]
  - Throat tightness [Recovered/Resolved]
  - Nasal discomfort [Recovered/Resolved]
  - Skin swelling [Recovered/Resolved]
  - Product use in unapproved indication [Recovered/Resolved]

NARRATIVE: CASE EVENT DATE: 20200929
